FAERS Safety Report 7514616-7 (Version None)
Quarter: 2011Q2

REPORT INFORMATION
  Report Type: 
  Country: None (occurrence: None)
  Receive Date: 20110422
  Receipt Date: 20101112
  Transmission Date: 20111010
  Serious: No
  Sender: FDA-Public Use
  Company Number: APP201000981

PATIENT

DRUGS (1)
  1. HEPARIN SODIUM [Suspect]
     Indication: PRODUCT USED FOR UNKNOWN INDICATION
     Dosage: 0.5 UNIT/ML, RATE VARIED AND KVO, INTRAVENOUS, 1 UNIT/ML, RATE VARIED AND KVO, INTRAVENOUS
     Route: 042

REACTIONS (2)
  - DRUG INEFFECTIVE [None]
  - DEVICE OCCLUSION [None]
